FAERS Safety Report 15589978 (Version 1)
Quarter: 2018Q4

REPORT INFORMATION
  Report Type: Report from Study
  Country: US (occurrence: US)
  Receive Date: 20181106
  Receipt Date: 20181106
  Transmission Date: 20190205
  Serious: Yes (Other)
  Sender: FDA-Public Use
  Company Number: US-009507513-1810USA013804

PATIENT
  Age: 68 Year
  Sex: Female
  Weight: 81.7 kg

DRUGS (7)
  1. VANCOMYCIN [Suspect]
     Active Substance: VANCOMYCIN
     Dosage: UNK
     Dates: end: 20181027
  2. CYTARABINE. [Suspect]
     Active Substance: CYTARABINE
     Indication: ACUTE MYELOID LEUKAEMIA
  3. POSACONAZOLE [Suspect]
     Active Substance: POSACONAZOLE
     Dosage: UNK
     Dates: end: 20181026
  4. MEROPENEM. [Suspect]
     Active Substance: MEROPENEM
  5. PEMBROLIZUMAB. [Suspect]
     Active Substance: PEMBROLIZUMAB
     Indication: ACUTE MYELOID LEUKAEMIA
  6. MICAFUNGIN. [Suspect]
     Active Substance: MICAFUNGIN SODIUM
  7. AZITHROMYCIN ANHYDROUS. [Concomitant]
     Active Substance: AZITHROMYCIN ANHYDROUS

REACTIONS (3)
  - Drug-induced liver injury [Unknown]
  - Lymphadenopathy mediastinal [Unknown]
  - Lung infection [Unknown]

NARRATIVE: CASE EVENT DATE: 2018
